FAERS Safety Report 4523957-7 (Version None)
Quarter: 2004Q4

REPORT INFORMATION
  Report Type: 
  Country: None (occurrence: None)
  Receive Date: 20041209
  Receipt Date: 20041130
  Transmission Date: 20050328
  Serious: Yes (Death)
  Sender: FDA-Public Use
  Company Number: 200421122BWH

PATIENT
  Sex: 0

DRUGS (1)
  1. TRASYLOL [Suspect]

REACTIONS (2)
  - EMBOLIC STROKE [None]
  - POST PROCEDURAL COMPLICATION [None]
